FAERS Safety Report 6910776-7 (Version None)
Quarter: 2010Q3

REPORT INFORMATION
  Report Type: 
  Country: None (occurrence: None)
  Receive Date: 20100806
  Receipt Date: 20100728
  Transmission Date: 20110219
  Serious: Yes (Hospitalization, Other)
  Sender: FDA-Public Use
  Company Number: BR-MEDIMMUNE-MEDI-0011375

PATIENT
  Sex: Male
  Weight: 4.08 kg

DRUGS (7)
  1. SYNAGIS [Suspect]
     Indication: BRONCHOPULMONARY DYSPLASIA
     Route: 030
     Dates: start: 20100614, end: 20100614
  2. SYNAGIS [Suspect]
     Indication: CARDIOMYOPATHY
  3. DOMPERIDONE [Concomitant]
     Dates: start: 20100125
  4. RANITIDINE HYDROCHLORIDE [Concomitant]
     Dates: start: 20100125
  5. BUDESONIDE [Concomitant]
     Dates: start: 20100125
  6. VITAMIN TAB [Concomitant]
     Dates: start: 20100125
  7. FERROUS SULFATE [Concomitant]
     Route: 048
     Dates: start: 20100125

REACTIONS (5)
  - BRONCHIOLITIS [None]
  - COUGH [None]
  - EYE DISCHARGE [None]
  - RESPIRATORY ARREST [None]
  - RHINITIS [None]
